FAERS Safety Report 10130443 (Version 2)
Quarter: 2015Q1

REPORT INFORMATION
  Report Type: Other
  Country: US (occurrence: US)
  Receive Date: 20140428
  Receipt Date: 20150220
  Transmission Date: 20150720
  Serious: Yes (Hospitalization, Other)
  Sender: FDA-Public Use
  Company Number: US-GSKPPD-2014GSK035549

PATIENT
  Age: 77 Year
  Sex: Female

DRUGS (13)
  1. AVANDIA [Suspect]
     Active Substance: ROSIGLITAZONE MALEATE
     Indication: DIABETES MELLITUS
     Dosage: AVANDIA WAS NOT LISTED AMONG THE PATIENTS RECORDS REVIEWED.
     Route: 048
  2. ASPIRIN. [Concomitant]
     Active Substance: ASPIRIN
  3. NOVOLIN [Concomitant]
     Active Substance: INSULIN HUMAN
     Dosage: UNIT DOSE: 55 UNITS
     Route: 058
  4. PREVACID [Concomitant]
     Active Substance: LANSOPRAZOLE
  5. PLAVIX [Concomitant]
     Active Substance: CLOPIDOGREL BISULFATE
  6. LOVENOX [Concomitant]
     Active Substance: ENOXAPARIN SODIUM
     Route: 058
  7. NOVOLIN N [Concomitant]
     Active Substance: INSULIN HUMAN
     Dosage: UNIT DOSE: 50 UNITS
     Route: 058
  8. CATAPRES [Concomitant]
     Active Substance: CLONIDINE HYDROCHLORIDE
  9. DIFLUCAN [Concomitant]
     Active Substance: FLUCONAZOLE
  10. PRINIVIL [Concomitant]
     Active Substance: LISINOPRIL
  11. NORVASC [Concomitant]
     Active Substance: AMLODIPINE BESYLATE
  12. ALAMAG [Concomitant]
  13. ROBAFEN AC [Concomitant]
     Active Substance: CODEINE PHOSPHATE\GUAIFENESIN
     Dosage: UNIT DOSE: 20-200 MG

REACTIONS (1)
  - Cerebrovascular accident [Unknown]

NARRATIVE: CASE EVENT DATE: 20080701
